FAERS Safety Report 5537694-3 (Version None)
Quarter: 2007Q4

REPORT INFORMATION
  Report Type: 
  Country: None (occurrence: None)
  Receive Date: 20071207
  Receipt Date: 20071129
  Transmission Date: 20080405
  Serious: Yes (Hospitalization)
  Sender: FDA-Public Use
  Company Number: JP-BRISTOL-MYERS SQUIBB COMPANY-14006241

PATIENT
  Age: 31 Year
  Sex: Female

DRUGS (5)
  1. ARIPIPRAZOLE [Suspect]
     Indication: SCHIZOPHRENIA
     Route: 048
     Dates: start: 20070806, end: 20071003
  2. BROTIZOLAM [Concomitant]
     Route: 048
     Dates: start: 20070705, end: 20071003
  3. MEXAZOLAM [Concomitant]
     Route: 048
     Dates: start: 20070706, end: 20071006
  4. ZOLPIDEM TARTRATE [Concomitant]
     Route: 048
     Dates: start: 20070806, end: 20071003
  5. QUETIAPINE FUMARATE [Concomitant]
     Dosage: 03OCT07(87.5MG);ORAL
     Route: 048
     Dates: start: 20070817, end: 20071006

REACTIONS (3)
  - HALLUCINATION, AUDITORY [None]
  - INSOMNIA [None]
  - IRRITABILITY [None]
